FAERS Safety Report 15693609 (Version 1)
Quarter: 2018Q4

REPORT INFORMATION
  Report Type: Spontaneous
  Country: TR (occurrence: TR)
  Receive Date: 20181206
  Receipt Date: 20181206
  Transmission Date: 20190205
  Serious: Yes (Other)
  Sender: FDA-Public Use
  Company Number: TR-UNICHEM PHARMACEUTICALS (USA) INC-UCM201811-000334

PATIENT
  Age: 69 Year
  Sex: Male

DRUGS (8)
  1. FILGRASTIM [Concomitant]
     Active Substance: FILGRASTIM
  2. RISPERIDONE. [Concomitant]
     Active Substance: RISPERIDONE
  3. QUETIAPINE. [Suspect]
     Active Substance: QUETIAPINE
     Indication: MANIA
  4. LITHIUM. [Concomitant]
     Active Substance: LITHIUM
  5. OLANZAPINE. [Concomitant]
     Active Substance: OLANZAPINE
  6. LITHIUM. [Concomitant]
     Active Substance: LITHIUM
  7. CEFTRIAXONE. [Concomitant]
     Active Substance: CEFTRIAXONE
     Indication: PNEUMONIA
     Route: 042
  8. QUETIAPINE. [Suspect]
     Active Substance: QUETIAPINE

REACTIONS (3)
  - Bone marrow failure [Recovered/Resolved]
  - Leukopenia [Recovered/Resolved]
  - Thrombocytopenia [Recovered/Resolved]
